FAERS Safety Report 5099493-9 (Version None)
Quarter: 2006Q3

REPORT INFORMATION
  Report Type: 
  Country: None (occurrence: None)
  Receive Date: 20060908
  Receipt Date: 20060831
  Transmission Date: 20061208
  Serious: Yes (Hospitalization)
  Sender: FDA-Public Use
  Company Number: PHRM2006FR02473

PATIENT
  Age: 109 Year
  Sex: Female

DRUGS (4)
  1. RENITEC [Concomitant]
     Indication: HYPERTENSION
     Dosage: 5 MG, QD
     Route: 048
  2. TEGRETOL [Suspect]
     Indication: FACIAL NEURALGIA
     Dosage: 400 MG, BID
     Route: 048
  3. TEGRETOL [Suspect]
     Dosage: 1/2 TABLET TWICE DAILY
     Route: 048
     Dates: end: 20060804
  4. ENALAPRIL MALEATE AND HYDROCHLOROTHIAZIDE [Suspect]
     Indication: HYPERTENSION
     Dosage: 1/2 TABLET DAILY
     Route: 048
     Dates: end: 20060728

REACTIONS (4)
  - FALL [None]
  - FLUID INTAKE RESTRICTION [None]
  - HYPONATRAEMIA [None]
  - PAIN [None]
